FAERS Safety Report 4782360-5 (Version None)
Quarter: 2005Q3

REPORT INFORMATION
  Report Type: 
  Country: None (occurrence: None)
  Receive Date: 20050914
  Receipt Date: 20050706
  Transmission Date: 20060218
  Serious: Yes (Other)
  Sender: FDA-Public Use
  Company Number: 163-20785-05070136

PATIENT
  Sex: 0

DRUGS (4)
  1. THALOMID [Suspect]
     Indication: MULTIPLE MYELOMA
     Dosage: 200-400MG/D PO STARTING ON DAY 4
     Dates: start: 20030320, end: 20030101
  2. GENASENSE [Suspect]
     Indication: MULTIPLE MYELOMA
     Dosage: 7 MG/KG/D CIV ON AYS 1-7, 22-28, AND 43-49, INTRAVENOUS DRIP; SEE IMAGE
     Route: 041
     Dates: start: 20030428, end: 20030101
  3. GENASENSE [Suspect]
     Indication: MULTIPLE MYELOMA
     Dosage: 7 MG/KG/D CIV ON AYS 1-7, 22-28, AND 43-49, INTRAVENOUS DRIP; SEE IMAGE
     Route: 041
     Dates: start: 20030317, end: 20030401
  4. DEXAMETHASONE [Suspect]
     Indication: MULTIPLE MYELOMA
     Dosage: 40MG/D PO ON DAYS 4-7, 25-28, 46-49,
     Dates: start: 20030320, end: 20030101

REACTIONS (2)
  - INFECTION [None]
  - NEUTROPHIL COUNT DECREASED [None]
